FAERS Safety Report 4813016-8 (Version None)
Quarter: 2005Q4

REPORT INFORMATION
  Report Type: 
  Country: None (occurrence: None)
  Receive Date: 20051028
  Receipt Date: 20050603
  Transmission Date: 20060501
  Serious: No
  Sender: FDA-Public Use
  Company Number: US-GLAXOSMITHKLINE-A0561133A

PATIENT
  Age: 81 Year
  Sex: Male

DRUGS (13)
  1. ADVAIR DISKUS 100/50 [Suspect]
     Indication: CHRONIC OBSTRUCTIVE PULMONARY DISEASE
     Dosage: 1PUFF TWICE PER DAY
     Route: 055
  2. SPIRIVA [Suspect]
     Indication: DRUG USE FOR UNKNOWN INDICATION
     Route: 065
  3. POTASSIUM [Concomitant]
  4. EFFEXOR [Concomitant]
  5. LASIX [Concomitant]
  6. PREDNISONE [Concomitant]
  7. ALBUTEROL [Concomitant]
  8. PROSCAR [Concomitant]
  9. MECLIZINE [Concomitant]
     Route: 065
  10. DILTIAZEM [Concomitant]
  11. DIGOXIN [Concomitant]
     Route: 065
  12. TEMAZEPAM [Concomitant]
     Route: 065
  13. AMITRIPTYLINE HCL [Concomitant]
     Route: 065

REACTIONS (2)
  - DYSPNOEA EXERTIONAL [None]
  - RESPIRATORY TRACT CONGESTION [None]
